FAERS Safety Report 10189127 (Version 2)
Quarter: 2014Q3

REPORT INFORMATION
  Report Type: Spontaneous
  Country: CH (occurrence: CH)
  Receive Date: 20140522
  Receipt Date: 20140813
  Transmission Date: 20150326
  Serious: Yes (Other)
  Sender: FDA-Public Use
  Company Number: CH-BAYER-2014-074250

PATIENT
  Sex: Female

DRUGS (2)
  1. INTERFERON BETA - 1B [Suspect]
     Active Substance: INTERFERON BETA-1B
     Indication: RELAPSING-REMITTING MULTIPLE SCLEROSIS
     Dosage: UNK
     Dates: start: 2011, end: 201208
  2. INTERFERON BETA - 1B [Suspect]
     Active Substance: INTERFERON BETA-1B
     Indication: RELAPSING-REMITTING MULTIPLE SCLEROSIS
     Dosage: EVERY OTHER DAY
     Dates: start: 1999, end: 2000

REACTIONS (3)
  - Skin necrosis [None]
  - Drug ineffective [None]
  - Multiple sclerosis [None]

NARRATIVE: CASE EVENT DATE: 201208
